FAERS Safety Report 6060452-0 (Version None)
Quarter: 2009Q1

REPORT INFORMATION
  Report Type: 
  Country: None (occurrence: None)
  Receive Date: 20090129
  Receipt Date: 20090120
  Transmission Date: 20090719
  Serious: Yes (Hospitalization)
  Sender: FDA-Public Use
  Company Number: 2008AL012086

PATIENT
  Sex: Female

DRUGS (1)
  1. DIGOXIN [Suspect]
     Indication: CARDIAC DISORDER
     Dosage: 0.125MG, DAILY, PO
     Route: 048

REACTIONS (7)
  - ARRHYTHMIA [None]
  - DIZZINESS [None]
  - HEADACHE [None]
  - HEART RATE ABNORMAL [None]
  - NAUSEA [None]
  - VISION BLURRED [None]
  - VOMITING [None]
